FAERS Safety Report 25621505 (Version 1)
Quarter: 2025Q3

REPORT INFORMATION
  Report Type: Spontaneous
  Country: EU (occurrence: EU)
  Receive Date: 20250730
  Receipt Date: 20250730
  Transmission Date: 20251021
  Serious: Yes (Other)
  Sender: RANBAXY
  Company Number: EU-SUN PHARMACEUTICAL INDUSTRIES LTD-2025RR-519744

PATIENT
  Age: 69 Year
  Sex: Male

DRUGS (8)
  1. PREGABALIN [Suspect]
     Active Substance: PREGABALIN
     Indication: Analgesic therapy
     Dosage: 100 MILLIGRAM, BID
     Route: 065
  2. MIDAZOLAM [Suspect]
     Active Substance: MIDAZOLAM
     Indication: Rectal tenesmus
     Route: 065
  3. AMITRIPTYLINE [Suspect]
     Active Substance: AMITRIPTYLINE
     Indication: Analgesic therapy
     Dosage: 30 MILLIGRAM, DAILY, NOCTE
     Route: 065
  4. DEXAMETHASONE [Suspect]
     Active Substance: DEXAMETHASONE
     Indication: Rectal tenesmus
     Route: 065
  5. METHADONE [Suspect]
     Active Substance: METHADONE HYDROCHLORIDE
     Indication: Analgesic therapy
     Dosage: 1.5 MILLIGRAM, TID
     Route: 065
  6. METHADONE [Suspect]
     Active Substance: METHADONE HYDROCHLORIDE
     Route: 065
  7. KETAMINE [Suspect]
     Active Substance: KETAMINE
     Indication: Rectal tenesmus
     Dosage: 100 MILLIGRAM, DAILY
     Route: 065
  8. KETAMINE [Suspect]
     Active Substance: KETAMINE
     Route: 065

REACTIONS (4)
  - Neurotoxicity [Unknown]
  - Euphoric mood [Unknown]
  - Drug ineffective [Unknown]
  - Adverse drug reaction [Unknown]
